FAERS Safety Report 19713931 (Version 1)
Quarter: 2021Q3

REPORT INFORMATION
  Report Type: Other
  Country: JP (occurrence: JP)
  Receive Date: 20210818
  Receipt Date: 20210818
  Transmission Date: 20211014
  Serious: Yes (Hospitalization, Other)
  Sender: FDA-Public Use
  Company Number: JP-NUVO PHARMACEUTICALS INC-2115208

PATIENT
  Age: 36 Year
  Sex: Male
  Weight: 65 kg

DRUGS (3)
  1. NAPROXEN. [Suspect]
     Active Substance: NAPROXEN
     Indication: PYREXIA
     Route: 065
  2. ACETAMINOPHEN. [Suspect]
     Active Substance: ACETAMINOPHEN
     Route: 065
  3. LOXOPROFEN [Suspect]
     Active Substance: LOXOPROFEN
     Route: 065

REACTIONS (1)
  - Drug ineffective [Recovered/Resolved]
